FAERS Safety Report 10179437 (Version 1)
Quarter: 2014Q2

REPORT INFORMATION
  Report Type: Spontaneous
  Country: US (occurrence: None)
  Receive Date: 20140425
  Receipt Date: 20140425
  Transmission Date: 20141212
  Serious: No
  Sender: FDA-Public Use
  Company Number: AP356-00509-SPO-US

PATIENT
  Sex: Female

DRUGS (1)
  1. BELVIQ (LORCASERIN HYDROCHLORIDE) [Suspect]
     Dates: start: 201402, end: 2014

REACTIONS (2)
  - Mental disorder [None]
  - Agitation [None]
